FAERS Safety Report 14788734 (Version 1)
Quarter: 2018Q2

REPORT INFORMATION
  Report Type: Spontaneous
  Country: DE (occurrence: DE)
  Receive Date: 20180423
  Receipt Date: 20180423
  Transmission Date: 20180711
  Serious: Yes (Other)
  Sender: FDA-Public Use
  Company Number: DE-WEST-WARD PHARMACEUTICALS CORP.-DE-H14001-18-03256

PATIENT
  Sex: Female

DRUGS (9)
  1. RANITIDIN [Interacting]
     Active Substance: RANITIDINE HYDROCHLORIDE
     Indication: NONINFECTIVE ENCEPHALITIS
     Dosage: UNK ()
  2. PREDNISOLON [Interacting]
     Active Substance: PREDNISOLONE
     Indication: NONINFECTIVE ENCEPHALITIS
     Dosage: UNK ()
  3. LEVETIRACETAM. [Suspect]
     Active Substance: LEVETIRACETAM
     Indication: EPILEPSY
     Dosage: UNK ()
  4. DEKRISTOL [Interacting]
     Active Substance: CHOLECALCIFEROL
     Indication: NONINFECTIVE ENCEPHALITIS
     Dosage: UNK ()
  5. FOLIC ACID. [Interacting]
     Active Substance: FOLIC ACID
     Indication: NONINFECTIVE ENCEPHALITIS
     Dosage: UNK ()
  6. MAXIM (DIENOGEST\ETHINYL ESTRADIOL) [Interacting]
     Active Substance: DIENOGEST\ETHINYL ESTRADIOL
     Indication: PRODUCT USED FOR UNKNOWN INDICATION
     Dosage: UNK ()
     Route: 048
  7. L-THYROXIN [Interacting]
     Active Substance: LEVOTHYROXINE SODIUM
     Indication: THYROID OPERATION
     Dosage: UNK ()
  8. MAGNESIUM [Interacting]
     Active Substance: MAGNESIUM
     Indication: NONINFECTIVE ENCEPHALITIS
     Dosage: UNK ()
  9. METHOTREXAT [Interacting]
     Active Substance: METHOTREXATE
     Indication: NONINFECTIVE ENCEPHALITIS
     Dosage: UNK ()

REACTIONS (3)
  - Epilepsy [Unknown]
  - Drug interaction [Unknown]
  - Noninfective encephalitis [Unknown]

NARRATIVE: CASE EVENT DATE: 201712
